FAERS Safety Report 19797566 (Version 5)
Quarter: 2021Q4

REPORT INFORMATION
  Report Type: Report from Study
  Country: CA (occurrence: CA)
  Receive Date: 20210901
  Receipt Date: 20211103
  Transmission Date: 20220304
  Serious: Yes (Hospitalization, Other)
  Sender: FDA-Public Use
  Company Number: CA-BAUSCH-BL-2021-006973

PATIENT
  Age: 53 Year
  Sex: Female
  Weight: 90.800 kg

DRUGS (2)
  1. SILIQ [Suspect]
     Active Substance: BRODALUMAB
     Indication: Psoriasis
     Dosage: 210MG/ 1.5 ML
     Route: 058
     Dates: start: 20210222, end: 202103
  2. SILIQ [Suspect]
     Active Substance: BRODALUMAB
     Dosage: 210MG/1.5 ML
     Route: 058
     Dates: start: 202103, end: 2021

REACTIONS (10)
  - Uterine haemorrhage [Recovered/Resolved]
  - Haemoglobin decreased [Recovered/Resolved]
  - Cystitis [Recovered/Resolved]
  - Dry mouth [Recovered/Resolved]
  - Psoriasis [Recovered/Resolved]
  - Menstrual disorder [Recovered/Resolved]
  - Device expulsion [Unknown]
  - Urinary tract infection [Recovered/Resolved]
  - Nausea [Recovered/Resolved]
  - Intentional dose omission [Unknown]

NARRATIVE: CASE EVENT DATE: 20210101
